FAERS Safety Report 5606573-5 (Version None)
Quarter: 2008Q1

REPORT INFORMATION
  Report Type: 
  Country: None (occurrence: None)
  Receive Date: 20080125
  Receipt Date: 20080118
  Transmission Date: 20080703
  Serious: Yes (Other)
  Sender: FDA-Public Use
  Company Number: 163-21880-08010889

PATIENT
  Sex: Female

DRUGS (3)
  1. REVLIMID [Suspect]
     Indication: MULTIPLE MYELOMA
     Dosage: 10 MG, DAILY X21 DAYS AS DIRECTED, ORAL; 5 MG, FOR 21 DAYS, ORAL; 10 MG, 1 IN 1 D, ORAL
     Route: 048
     Dates: start: 20071109, end: 20071130
  2. REVLIMID [Suspect]
     Indication: MULTIPLE MYELOMA
     Dosage: 10 MG, DAILY X21 DAYS AS DIRECTED, ORAL; 5 MG, FOR 21 DAYS, ORAL; 10 MG, 1 IN 1 D, ORAL
     Route: 048
     Dates: start: 20071130, end: 20080104
  3. REVLIMID [Suspect]
     Indication: MULTIPLE MYELOMA
     Dosage: 10 MG, DAILY X21 DAYS AS DIRECTED, ORAL; 5 MG, FOR 21 DAYS, ORAL; 10 MG, 1 IN 1 D, ORAL
     Route: 048
     Dates: start: 20080104

REACTIONS (8)
  - BRONCHITIS [None]
  - CONVULSION [None]
  - GROIN ABSCESS [None]
  - MUSCLE SPASMS [None]
  - NAUSEA [None]
  - NEUROPATHY PERIPHERAL [None]
  - VIRAL INFECTION [None]
  - VISION BLURRED [None]
